FAERS Safety Report 10440613 (Version 1)
Quarter: 2014Q3

REPORT INFORMATION
  Report Type: Spontaneous
  Country: US (occurrence: None)
  Receive Date: 20140908
  Receipt Date: 20140908
  Transmission Date: 20150326
  Serious: Yes (Life-Threatening, Other)
  Sender: FDA-Public Use
  Company Number: None

PATIENT
  Age: 56 Year
  Sex: Male

DRUGS (1)
  1. CHANTIX [Suspect]
     Active Substance: VARENICLINE TARTRATE
     Indication: SMOKING CESSATION THERAPY

REACTIONS (8)
  - Quality of life decreased [None]
  - Loss of employment [None]
  - Hallucination, visual [None]
  - Psychotic disorder [None]
  - Mental disorder [None]
  - Family stress [None]
  - Personality change [None]
  - Emotional disorder [None]
